FAERS Safety Report 9838245 (Version 1)
Quarter: 2014Q1

REPORT INFORMATION
  Report Type: Spontaneous
  Country: ES (occurrence: ES)
  Receive Date: 20140123
  Receipt Date: 20140123
  Transmission Date: 20141002
  Serious: Yes (Hospitalization, Other)
  Sender: FDA-Public Use
  Company Number: ES-UCBSA-109139

PATIENT
  Age: 86 Year
  Sex: Male

DRUGS (5)
  1. KEPPRA [Suspect]
     Indication: CONVULSION
     Dosage: 100 MG/ML
     Route: 042
     Dates: start: 20130806
  2. OMEPRAZOLE [Concomitant]
  3. CITICOLINE [Concomitant]
  4. ATACAND [Concomitant]
     Dosage: 32 MG
  5. FOLI-DOCE [Concomitant]
     Dosage: 28

REACTIONS (3)
  - Depressed level of consciousness [Recovering/Resolving]
  - Respiratory failure [Recovering/Resolving]
  - Tachycardia [Recovering/Resolving]
